FAERS Safety Report 5216490-0 (Version None)
Quarter: 2006Q4

REPORT INFORMATION
  Report Type: 
  Country: None (occurrence: None)
  Receive Date: 20061129
  Receipt Date: 20040714
  Transmission Date: 20070319
  Serious: No
  Sender: FDA-Public Use
  Company Number: 2004UW14808

PATIENT
  Age: 50 Year
  Sex: Female

DRUGS (1)
  1. FASLODEX [Suspect]
     Dosage: 250 MG DAILY IM
     Route: 030
     Dates: start: 20030101, end: 20040101

REACTIONS (4)
  - DISEASE PROGRESSION [None]
  - INJECTION SITE REACTION [None]
  - PYREXIA [None]
  - URINARY TRACT INFECTION [None]
